FAERS Safety Report 15296431 (Version 1)
Quarter: 2018Q3

REPORT INFORMATION
  Report Type: Spontaneous
  Country: US (occurrence: US)
  Receive Date: 20180820
  Receipt Date: 20180820
  Transmission Date: 20181010
  Serious: No
  Sender: FDA-Public Use
  Company Number: US-ASTELLAS-2018US018722

PATIENT
  Sex: Male

DRUGS (1)
  1. AMBISOME [Suspect]
     Active Substance: AMPHOTERICIN B
     Indication: HIV-ASSOCIATED NEUROCOGNITIVE DISORDER
     Route: 065
     Dates: start: 20180413

REACTIONS (2)
  - Off label use [Unknown]
  - Overdose [Unknown]
